FAERS Safety Report 25256397 (Version 2)
Quarter: 2025Q3

REPORT INFORMATION
  Report Type: Report from Study
  Country: AR (occurrence: AR)
  Receive Date: 20250430
  Receipt Date: 20250803
  Transmission Date: 20251020
  Serious: Yes (Other)
  Sender: ALEXION PHARMACEUTICALS
  Company Number: AR-AstraZeneca-CH-00855378A

PATIENT
  Sex: Female

DRUGS (1)
  1. BUDESONIDE\FORMOTEROL\GLYCOPYRRONIUM [Suspect]
     Active Substance: BUDESONIDE\FORMOTEROL\GLYCOPYRRONIUM
     Indication: Emphysema
     Dates: start: 20250123, end: 20250323

REACTIONS (8)
  - Asthenia [Unknown]
  - Aphonia [Recovering/Resolving]
  - Arrhythmia [Recovering/Resolving]
  - Discomfort [Recovering/Resolving]
  - Decreased appetite [Recovering/Resolving]
  - Dysphonia [Recovered/Resolved]
  - Asthenia [Recovered/Resolved]
  - Drug hypersensitivity [Unknown]

NARRATIVE: CASE EVENT DATE: 20250313
